FAERS Safety Report 8087772 (Version 3)
Quarter: 2012Q4

REPORT INFORMATION
  Report Type: Spontaneous
  Country: US (occurrence: None)
  Receive Date: 20110804
  Receipt Date: 20120919
  Transmission Date: 20130627
  Serious: Yes (Hospitalization, Disabling, Other)
  Sender: FDA-Public Use
  Company Number: 2011MA009259

PATIENT
  Sex: Female
  Weight: 45.36 kg

DRUGS (44)
  1. METOCLOPRAMIDE [Suspect]
     Indication: NAUSEA
     Route: 048
     Dates: start: 20021221, end: 20091022
  2. METOCLOPRAMIDE [Suspect]
     Indication: IMPAIRED GASTRIC EMPTYING
     Route: 048
     Dates: start: 20021221, end: 20091022
  3. ZELNORM [Concomitant]
  4. DOMPERIDONE [Concomitant]
  5. BENADRYL [Concomitant]
  6. ATIVAN [Concomitant]
  7. DILANTIN [Concomitant]
  8. PHENERGAN [Concomitant]
  9. QUIETIAPINE (QUETIAPINE FUMARATE) (UNKNOWN) [Concomitant]
  10. TRAZODONE HYDROCHLORIDE [Concomitant]
  11. SLEEP MEDICATIONS [Concomitant]
  12. PROMETHAZINE [Concomitant]
  13. PAROXETINE [Concomitant]
  14. SEROQUEL [Concomitant]
  15. LORAZEPAM [Concomitant]
  16. ACETAMINOPHEN W/CODEINE [Concomitant]
  17. ALPRAZOLAM [Concomitant]
  18. B+C POWDER [Concomitant]
  19. CEPHALEXIN [Concomitant]
  20. CHOLRDIAZEPOXIDE [Concomitant]
  21. CIPROFLOXACIN [Concomitant]
  22. CITALOPRAM [Concomitant]
  23. CYCLOBENZAPRINE [Concomitant]
  24. DICYCLOMINE [Concomitant]
  25. ERTYHROCIN [Concomitant]
  26. FLAGYL [Concomitant]
  27. HYDROCODONE W/APAP [Concomitant]
  28. HYDROCODONE W/IBUPROFEN [Concomitant]
  29. ISOMETHEPTENE-APAP-DICHLORALPHENAZONE [Concomitant]
  30. KAOPECTATE [Concomitant]
  31. KETOROLAC [Concomitant]
  32. LEVAQUIN [Concomitant]
  33. LISINOPRIL [Concomitant]
  34. LORTAB [Concomitant]
  35. MAALOX [Concomitant]
  36. METOPROLOL [Concomitant]
  37. METRONIDAZOLE [Concomitant]
  38. MIDRIN [Concomitant]
  39. NEXIUM [Concomitant]
  40. ONDANSETRON [Concomitant]
  41. PREVACID [Concomitant]
  42. PRINIVIL [Concomitant]
  43. PROPOXYPHENE-N 100 [Concomitant]
  44. PROTONIX [Concomitant]

REACTIONS (12)
  - Nausea [None]
  - Abdominal pain upper [None]
  - Rash [None]
  - Diabetic gastroparesis [None]
  - Dyskinesia [None]
  - Tardive dyskinesia [None]
  - Economic problem [None]
  - Abdominal pain [None]
  - Gastrooesophageal reflux disease [None]
  - Extrapyramidal disorder [None]
  - Tremor [None]
  - Emotional distress [None]
